FAERS Safety Report 7604259-9 (Version None)
Quarter: 2011Q3

REPORT INFORMATION
  Report Type: 
  Country: None (occurrence: None)
  Receive Date: 20110712
  Receipt Date: 20110707
  Transmission Date: 20111222
  Serious: Yes (Hospitalization)
  Sender: FDA-Public Use
  Company Number: JP-B.I. PHARMACEUTICALS,INC./RIDGEFIELD-2011-BP-17111NB

PATIENT
  Age: 68 Year
  Sex: Female
  Weight: 46.4 kg

DRUGS (7)
  1. LANSOPRAZOLE [Suspect]
     Indication: GASTRITIS PROPHYLAXIS
     Dosage: 15 MG
     Route: 048
     Dates: start: 20070702
  2. MOBIC [Suspect]
     Indication: RHEUMATOID ARTHRITIS
     Dosage: 10 MG
     Route: 048
     Dates: start: 20070702
  3. KETOPROFEN [Suspect]
     Indication: RHEUMATOID ARTHRITIS
     Dosage: AS NEEDED
     Route: 062
     Dates: start: 20090924
  4. METHOTREXATE [Suspect]
     Indication: RHEUMATOID ARTHRITIS
     Dosage: 8 MG
     Route: 048
     Dates: start: 20070731
  5. FOLIC ACID [Suspect]
     Indication: RHEUMATOID ARTHRITIS
     Dosage: 5 MG
     Route: 048
     Dates: start: 20070705
  6. FERROUS CITRATE [Suspect]
     Indication: ANAEMIA PROPHYLAXIS
     Dosage: 50 MG
     Route: 048
     Dates: start: 20091119
  7. UNKNOWNDRUG [Suspect]
     Indication: RHEUMATOID ARTHRITIS
     Dosage: 10 MG
     Route: 048
     Dates: start: 20080927

REACTIONS (1)
  - CERVICAL SPINAL STENOSIS [None]
